FAERS Safety Report 4959715-9 (Version None)
Quarter: 2006Q1

REPORT INFORMATION
  Report Type: 
  Country: None (occurrence: None)
  Receive Date: 20060327
  Receipt Date: 20060316
  Transmission Date: 20060701
  Serious: Yes (Other)
  Sender: FDA-Public Use
  Company Number: 2006BH005630

PATIENT
  Sex: 0

DRUGS (6)
  1. DOBUTAMINE HCL [Suspect]
     Dosage: 5 UG/KG; MIN; IV; 10 UG/KG; MIN; IV; 20 UG/KG; MIN; IV; 30 UG/KG; MIN; IV; 40 UG/KG; MIN; IV
     Route: 042
  2. DOBUTAMINE HCL [Suspect]
     Dosage: 5 UG/KG; MIN; IV; 10 UG/KG; MIN; IV; 20 UG/KG; MIN; IV; 30 UG/KG; MIN; IV; 40 UG/KG; MIN; IV
     Route: 042
  3. DOBUTAMINE HCL [Suspect]
     Dosage: 5 UG/KG; MIN; IV; 10 UG/KG; MIN; IV; 20 UG/KG; MIN; IV; 30 UG/KG; MIN; IV; 40 UG/KG; MIN; IV
     Route: 042
  4. DOBUTAMINE HCL [Suspect]
     Dosage: 5 UG/KG; MIN; IV; 10 UG/KG; MIN; IV; 20 UG/KG; MIN; IV; 30 UG/KG; MIN; IV; 40 UG/KG; MIN; IV
     Route: 042
  5. DOBUTAMINE HCL [Suspect]
     Dosage: 5 UG/KG; MIN; IV; 10 UG/KG; MIN; IV; 20 UG/KG; MIN; IV; 30 UG/KG; MIN; IV; 40 UG/KG; MIN; IV
     Route: 042
  6. ATROPINE [Suspect]
     Indication: CORONARY ARTERY DISEASE
     Dosage: 0.25 MG; MIN

REACTIONS (2)
  - CARDIAC PROCEDURE COMPLICATION [None]
  - VENTRICULAR TACHYCARDIA [None]
